FAERS Safety Report 21480800 (Version 2)
Quarter: 2022Q4

REPORT INFORMATION
  Report Type: Spontaneous
  Country: CA (occurrence: CA)
  Receive Date: 20221019
  Receipt Date: 20221021
  Transmission Date: 20230113
  Serious: Yes (Hospitalization)
  Sender: FDA-Public Use
  Company Number: CA-PFIZER INC-PV202200084284

PATIENT
  Age: 77 Year
  Sex: Male

DRUGS (9)
  1. LORLATINIB [Suspect]
     Active Substance: LORLATINIB
     Indication: Lung adenocarcinoma
     Dosage: UNK
     Dates: start: 202203
  2. ACARBOSE [Concomitant]
     Active Substance: ACARBOSE
     Dosage: UNK
  3. AMLODIPINE [Concomitant]
     Active Substance: AMLODIPINE BESYLATE
     Dosage: UNK
  4. ATENOLOL [Concomitant]
     Active Substance: ATENOLOL
     Dosage: UNK
  5. CRESTOR [Concomitant]
     Active Substance: ROSUVASTATIN CALCIUM
     Dosage: 20 MG, DAILY (INCREASE TO 20MG OD)
  6. FENOFIBRATE [Concomitant]
     Active Substance: FENOFIBRATE
     Dosage: 100 MG, DAILY (OD, RENAL DOSING)
     Route: 048
  7. GLICLAZIDE [Concomitant]
     Active Substance: GLICLAZIDE
     Dosage: UNK
  8. LINAGLIPTIN [Concomitant]
     Active Substance: LINAGLIPTIN
     Dosage: UNK
  9. ROSUVASTATIN [Concomitant]
     Active Substance: ROSUVASTATIN
     Dosage: 10 MG, 1X/DAY (QHS)
     Route: 048

REACTIONS (6)
  - Dyspnoea [Unknown]
  - Pleural effusion [Unknown]
  - Oedema peripheral [Unknown]
  - Blood triglycerides abnormal [Unknown]
  - Low density lipoprotein abnormal [Unknown]
  - High density lipoprotein abnormal [Unknown]

NARRATIVE: CASE EVENT DATE: 20220101
